FAERS Safety Report 9067749 (Version 2)
Quarter: 2013Q1

REPORT INFORMATION
  Report Type: Spontaneous
  Country: IT (occurrence: IT)
  Receive Date: 20130206
  Receipt Date: 20130219
  Transmission Date: 20140127
  Serious: Yes (Hospitalization)
  Sender: FDA-Public Use
  Company Number: IT-PFIZER INC-2013033436

PATIENT
  Age: 61 Year
  Sex: Female

DRUGS (7)
  1. SOLU-MEDROL [Suspect]
     Indication: NEPHROTIC SYNDROME
     Dosage: 1 DF, 1X/DAY
     Route: 042
     Dates: start: 20120117, end: 20120119
  2. DELTACORTENE [Suspect]
     Indication: NEPHROTIC SYNDROME
     Dosage: 40 MG, DAILY
     Route: 048
     Dates: start: 20120120
  3. SIVASTIN [Concomitant]
     Dosage: UNK
  4. LOSAPREX [Concomitant]
     Dosage: UNK
  5. NEXIUM [Concomitant]
     Dosage: UNK
  6. ALDACTONE [Concomitant]
     Dosage: UNK
  7. LASIX [Concomitant]
     Dosage: UNK

REACTIONS (1)
  - Diabetes mellitus [Recovered/Resolved with Sequelae]
